FAERS Safety Report 5578458-4 (Version None)
Quarter: 2007Q4

REPORT INFORMATION
  Report Type: 
  Country: None (occurrence: None)
  Receive Date: 20071227
  Receipt Date: 20071218
  Transmission Date: 20080405
  Serious: Yes (Life-Threatening, Hospitalization, Other)
  Sender: FDA-Public Use
  Company Number: A-US2007-18394

PATIENT
  Age: 59 Year
  Sex: Female
  Weight: 95.7 kg

DRUGS (1)
  1. TRACLEER [Suspect]
     Indication: PULMONARY HYPERTENSION
     Dosage: 62.5 MG, ORAL
     Route: 048

REACTIONS (3)
  - FALL [None]
  - HYPOTENSION [None]
  - SYNCOPE [None]
